FAERS Safety Report 7043996-4 (Version None)
Quarter: 2010Q4

REPORT INFORMATION
  Report Type: 
  Country: None (occurrence: None)
  Receive Date: 20101012
  Receipt Date: 20101012
  Transmission Date: 20110411
  Serious: Yes (Hospitalization)
  Sender: FDA-Public Use
  Company Number: None

PATIENT
  Sex: Female
  Weight: 52.6173 kg

DRUGS (1)
  1. AVELOX [Suspect]
     Indication: SINUSITIS
     Dosage: PO ONLY TOOK ONE DOSE
     Route: 048
     Dates: start: 20061026, end: 20061026

REACTIONS (13)
  - ABASIA [None]
  - ARRHYTHMIA [None]
  - ASTHENIA [None]
  - CHILLS [None]
  - CHRONIC FATIGUE SYNDROME [None]
  - DIARRHOEA [None]
  - FATIGUE [None]
  - MUSCLE CONTRACTIONS INVOLUNTARY [None]
  - MYDRIASIS [None]
  - PALPITATIONS [None]
  - SPEECH DISORDER [None]
  - TACHYCARDIA [None]
  - TREMOR [None]
